FAERS Safety Report 13712817 (Version 2)
Quarter: 2017Q3

REPORT INFORMATION
  Report Type: Report from Study
  Country: US (occurrence: BR)
  Receive Date: 20170703
  Receipt Date: 20170906
  Transmission Date: 20171127
  Serious: Yes (Death, Hospitalization)
  Sender: FDA-Public Use
  Company Number: US-SUNOVION-2017SUN002804

PATIENT
  Sex: Male

DRUGS (1)
  1. INDACATEROL AND GLYCOPYRROLATE [Suspect]
     Active Substance: GLYCOPYRROLATE\INDACATEROL MALEATE
     Indication: EMPHYSEMA
     Dosage: 1 DF, UNK (110/50 UG)
     Route: 065
     Dates: end: 20170531

REACTIONS (7)
  - Myocardial infarction [Fatal]
  - Agitation [Unknown]
  - Urinary tract infection [Unknown]
  - Nervousness [Unknown]
  - Malaise [Unknown]
  - Dyspnoea [Unknown]
  - Pleural effusion [Fatal]
